FAERS Safety Report 24213152 (Version 10)
Quarter: 2025Q1

REPORT INFORMATION
  Report Type: Spontaneous
  Country: US (occurrence: US)
  Receive Date: 20240815
  Receipt Date: 20250113
  Transmission Date: 20250409
  Serious: Yes (Other)
  Sender: PFIZER
  Company Number: US-PFIZER INC-202400232264

PATIENT
  Age: 61 Year
  Sex: Female

DRUGS (2)
  1. GENOTROPIN [Suspect]
     Active Substance: SOMATROPIN
     Dosage: 0.4 MG, DAILY, 7 DAYS/WEEK
     Dates: start: 202406, end: 20240811
  2. GENOTROPIN [Suspect]
     Active Substance: SOMATROPIN

REACTIONS (10)
  - Drug dose omission by device [Unknown]
  - Incorrect dose administered by device [Unknown]
  - Oedema peripheral [Unknown]
  - Paraesthesia [Not Recovered/Not Resolved]
  - Hypoaesthesia [Not Recovered/Not Resolved]
  - Peripheral swelling [Recovered/Resolved]
  - Carpal tunnel syndrome [Unknown]
  - Device malfunction [Unknown]
  - Device defective [Unknown]
  - Device physical property issue [Unknown]

NARRATIVE: CASE EVENT DATE: 20240101
